FAERS Safety Report 22223391 (Version 1)
Quarter: 2023Q2

REPORT INFORMATION
  Report Type: Spontaneous
  Country: US (occurrence: US)
  Receive Date: 20230418
  Receipt Date: 20230418
  Transmission Date: 20230721
  Serious: No
  Sender: FDA-Public Use
  Company Number: US-SA-SAC20230413000606

PATIENT
  Age: 80 Year
  Sex: Male
  Weight: 100.7 kg

DRUGS (4)
  1. PLAVIX [Suspect]
     Active Substance: CLOPIDOGREL BISULFATE
     Indication: Product used for unknown indication
     Dosage: UNK
     Route: 065
  2. TYVASO [Suspect]
     Active Substance: TREPROSTINIL
     Indication: Pulmonary arterial hypertension
     Dosage: 48 ?G, QID, INHALATION
     Route: 055
     Dates: start: 20220623
  3. ASPIRIN [Suspect]
     Active Substance: ASPIRIN
     Indication: Product used for unknown indication
     Dosage: 6 MG TOTAL
     Route: 065
  4. OFEV [Concomitant]
     Active Substance: NINTEDANIB
     Dosage: UNK
     Route: 065

REACTIONS (1)
  - Epistaxis [Unknown]
